FAERS Safety Report 12714264 (Version 2)
Quarter: 2016Q3

REPORT INFORMATION
  Report Type: Spontaneous
  Country: US (occurrence: US)
  Receive Date: 20160905
  Receipt Date: 20160907
  Transmission Date: 20161109
  Serious: No
  Sender: FDA-Public Use
  Company Number: US-PFIZER INC-2016410978

PATIENT
  Age: 65 Year
  Sex: Female
  Weight: 61.22 kg

DRUGS (1)
  1. ADVIL [Suspect]
     Active Substance: IBUPROFEN
     Indication: PAIN
     Dosage: 200 MG, AS NEEDED, 200 MG LIQUIGELS ONE CAPSULE
     Dates: start: 1965

REACTIONS (1)
  - Drug ineffective [Recovered/Resolved]
